FAERS Safety Report 9320167 (Version 1)
Quarter: 2013Q2

REPORT INFORMATION
  Report Type: Spontaneous
  Country: US (occurrence: US)
  Receive Date: 20130530
  Receipt Date: 20130530
  Transmission Date: 20140414
  Serious: No
  Sender: FDA-Public Use
  Company Number: US-UPSHER-SMITH LABORATORIES, INC.-13000582

PATIENT
  Age: 72 Year
  Sex: Female

DRUGS (5)
  1. POTASSIUM CHLORIDE IN LACTATED RINGERS AND DEXTROSE [Suspect]
     Indication: BLOOD POTASSIUM DECREASED
     Dosage: 10 MEQ, BID
     Route: 048
     Dates: start: 201108, end: 201302
  2. TRIAMTERENE [Concomitant]
     Dosage: UNK
  3. PLAVIX                             /01220701/ [Concomitant]
     Dosage: UNK
  4. CRESTOR                            /01588601/ [Concomitant]
     Dosage: UNK
  5. FISH OIL [Concomitant]
     Dosage: UNK

REACTIONS (2)
  - Drug ineffective [Unknown]
  - Medication residue present [Recovered/Resolved]
